FAERS Safety Report 11391020 (Version 1)
Quarter: 2015Q3

REPORT INFORMATION
  Report Type: Spontaneous
  Country: DE (occurrence: None)
  Receive Date: 20150813
  Receipt Date: 20150813
  Transmission Date: 20151125
  Serious: Yes (Hospitalization)
  Sender: FDA-Public Use
  Company Number: 2015RR-101034

PATIENT
  Age: 74 Year
  Sex: Male

DRUGS (3)
  1. LITHIUM (LITHIUM CARBONATE) [Suspect]
     Active Substance: LITHIUM
     Indication: DEPRESSION
  2. PRIMIDONE (PRIMIDONE) [Suspect]
     Active Substance: PRIMIDONE
     Indication: ESSENTIAL TREMOR
  3. VENLAFAXINE [Suspect]
     Active Substance: VENLAFAXINE HYDROCHLORIDE
     Indication: DEPRESSION

REACTIONS (2)
  - Cognitive disorder [None]
  - Metabolic disorder [None]
